FAERS Safety Report 4850918-0 (Version None)
Quarter: 2005Q4

REPORT INFORMATION
  Report Type: 
  Country: None (occurrence: None)
  Receive Date: 20051212
  Receipt Date: 20051028
  Transmission Date: 20060501
  Serious: Yes (Disabling)
  Sender: FDA-Public Use
  Company Number: JP-SANOFI-SYNTHELABO-A01200507477

PATIENT
  Age: 1002 Month
  Sex: Female
  Weight: 70 kg

DRUGS (7)
  1. MYSLEE [Suspect]
     Indication: INSOMNIA
     Dosage: 5 MG
     Route: 048
     Dates: start: 20040410, end: 20050914
  2. ARTIST [Concomitant]
     Indication: HYPERTENSION
     Dosage: 20 MG
     Route: 048
  3. URSO [Concomitant]
     Indication: CHOLELITHIASIS
     Dosage: 300 MG
     Route: 048
  4. COSPANON [Concomitant]
     Indication: CHOLELITHIASIS
     Dosage: 160 MG
     Route: 048
  5. FLUITRAN [Concomitant]
     Indication: HYPERTENSION
     Dosage: 2 MG
     Route: 048
  6. ALDOMET [Concomitant]
     Indication: HYPERTENSION
     Dosage: 250 MG
     Route: 048
  7. SM [Concomitant]
     Indication: GASTRITIS
     Dosage: 2 G
     Route: 048

REACTIONS (3)
  - DEMENTIA [None]
  - HALLUCINATION, AUDITORY [None]
  - PSYCHIATRIC SYMPTOM [None]
